FAERS Safety Report 5007342-X (Version None)
Quarter: 2006Q2

REPORT INFORMATION
  Report Type: 
  Country: None (occurrence: None)
  Receive Date: 20060517
  Receipt Date: 20060503
  Transmission Date: 20061013
  Serious: Yes (Life-Threatening)
  Sender: FDA-Public Use
  Company Number: 2006RR-02283

PATIENT
  Age: 58 Year
  Sex: Male

DRUGS (3)
  1. AMLODIPINE [Suspect]
     Indication: CEREBRAL INFARCTION
     Dosage: ORAL
     Route: 048
  2. BENAZEPRIL HYDROCHLORIDE [Suspect]
     Dosage: ORAL
     Route: 048
  3. ACTIVASE [Suspect]
     Indication: CEREBRAL INFARCTION
     Dosage: ORAL
     Route: 048

REACTIONS (2)
  - ANGIONEUROTIC OEDEMA [None]
  - DRUG INTERACTION [None]
